FAERS Safety Report 8538619-9 (Version None)
Quarter: 2012Q3

REPORT INFORMATION
  Report Type: 
  Country: None (occurrence: None)
  Receive Date: 20120718
  Receipt Date: 20120718
  Transmission Date: 20120928
  Serious: Yes (Death)
  Sender: FDA-Public Use
  Company Number: None

PATIENT
  Sex: Male
  Weight: 97.5234 kg

DRUGS (1)
  1. TEMAZEPAM [Suspect]
     Indication: INSOMNIA
     Dosage: 1 CAPSULE BEDTIME BY MOUTH
     Route: 048
     Dates: start: 20120515, end: 20120611

REACTIONS (1)
  - COMPLETED SUICIDE [None]
